FAERS Safety Report 9894926 (Version 2)
Quarter: 2014Q2

REPORT INFORMATION
  Report Type: Report from Study
  Country: AR (occurrence: AR)
  Receive Date: 20140213
  Receipt Date: 20140528
  Transmission Date: 20141212
  Serious: Yes (Other)
  Sender: FDA-Public Use
  Company Number: PHHY2014AR017867

PATIENT
  Age: 67 Year
  Sex: Female

DRUGS (3)
  1. LAPENAX [Suspect]
     Indication: MENTAL DISORDER
     Dosage: UNK UKN, UNK
     Route: 048
     Dates: end: 201402
  2. VENLAFAXINE [Concomitant]
     Dosage: UNK UKN, UNK
  3. ALPRAZOLAM [Concomitant]
     Dosage: UNK UKN, UNK

REACTIONS (3)
  - Breast cancer [Unknown]
  - Neutropenia [Recovering/Resolving]
  - White blood cell count decreased [Recovering/Resolving]
